FAERS Safety Report 13428221 (Version 6)
Quarter: 2018Q3

REPORT INFORMATION
  Report Type: Spontaneous
  Country: US (occurrence: US)
  Receive Date: 20170411
  Receipt Date: 20180710
  Transmission Date: 20181010
  Serious: Yes (Hospitalization)
  Sender: FDA-Public Use
  Company Number: US-ACTELION-A-US2017-152318

PATIENT
  Age: 27 Year
  Sex: Female
  Weight: 52.15 kg

DRUGS (12)
  1. AMLODIPINE [Concomitant]
     Active Substance: AMLODIPINE BESYLATE
  2. DIGOXIN. [Concomitant]
     Active Substance: DIGOXIN
  3. POTASSIUM CHLORIDE. [Concomitant]
     Active Substance: POTASSIUM CHLORIDE
  4. METHIMAZOLE. [Concomitant]
     Active Substance: METHIMAZOLE
  5. WARFARIN [Concomitant]
     Active Substance: WARFARIN
  6. ENOXAPARIN [Concomitant]
     Active Substance: ENOXAPARIN
  7. SPIRONOLACTONE. [Concomitant]
     Active Substance: SPIRONOLACTONE
  8. VELETRI [Suspect]
     Active Substance: EPOPROSTENOL
     Indication: PULMONARY ARTERIAL HYPERTENSION
     Dosage: 30 NG/KG, PER MIN
     Route: 042
  9. ADCIRCA [Concomitant]
     Active Substance: TADALAFIL
  10. CHOLECALCIFEROL [Concomitant]
     Active Substance: CHOLECALCIFEROL
  11. LETAIRIS [Suspect]
     Active Substance: AMBRISENTAN
     Indication: PULMONARY HYPERTENSION
     Dosage: 10 MG, QD
     Route: 048
  12. TORASEMIDE [Concomitant]
     Active Substance: TORSEMIDE

REACTIONS (4)
  - Catheter management [Recovered/Resolved]
  - Central venous catheterisation [Unknown]
  - Device related infection [Unknown]
  - Cellulitis [Recovered/Resolved]

NARRATIVE: CASE EVENT DATE: 20170405
